FAERS Safety Report 5736161-1 (Version None)
Quarter: 2008Q2

REPORT INFORMATION
  Report Type: 
  Country: None (occurrence: None)
  Receive Date: 20080509
  Receipt Date: 20080430
  Transmission Date: 20081010
  Serious: Yes (Death)
  Sender: FDA-Public Use
  Company Number: 20073762

PATIENT
  Age: 55 Year
  Sex: Male

DRUGS (1)
  1. LIORESAL [Suspect]
     Indication: MUSCLE SPASTICITY
     Dosage: 0.5996 MCG, DAILY, INTRATHECAL
     Route: 037

REACTIONS (2)
  - STAPHYLOCOCCAL INFECTION [None]
  - UROSEPSIS [None]
